FAERS Safety Report 23961677 (Version 1)
Quarter: 2024Q2

REPORT INFORMATION
  Report Type: Spontaneous
  Country: CH (occurrence: CH)
  Receive Date: 20240611
  Receipt Date: 20240611
  Transmission Date: 20240716
  Serious: Yes (Life-Threatening, Hospitalization, Other)
  Sender: FDA-Public Use
  Company Number: None

PATIENT
  Age: 19 Year
  Sex: Male
  Weight: 58.7 kg

DRUGS (12)
  1. CLARITHROMYCIN [Suspect]
     Active Substance: CLARITHROMYCIN
     Indication: Pneumonia mycoplasmal
     Dosage: UNK
     Route: 065
     Dates: start: 20240320, end: 20240322
  2. IBUPROFEN [Suspect]
     Active Substance: IBUPROFEN
     Indication: Respiratory tract infection
     Dosage: 600 MILLIGRAM (UP TO 3 X PER DAY PRN)
     Route: 048
     Dates: start: 20240316, end: 20240318
  3. IBUPROFEN [Suspect]
     Active Substance: IBUPROFEN
     Indication: Pneumonia mycoplasmal
  4. IBUPROFEN [Suspect]
     Active Substance: IBUPROFEN
     Indication: Epstein-Barr virus infection
  5. CEFEPIME HYDROCHLORIDE [Suspect]
     Active Substance: CEFEPIME HYDROCHLORIDE
     Indication: Pneumonia mycoplasmal
     Dosage: UNK
     Route: 042
     Dates: start: 20240322, end: 20240325
  6. VIBRAMYCIN [Concomitant]
     Active Substance: DOXYCYCLINE
     Indication: Pneumonia mycoplasmal
     Dosage: 100 MILLIGRAM, QD (0-0-1)
     Route: 048
     Dates: start: 20240322, end: 20240331
  7. DOMPERIDONE [Concomitant]
     Active Substance: DOMPERIDONE
     Indication: Nausea
     Dosage: 10 MILLIGRAM PRN MAXIMUM 3 PER DAY)
     Route: 048
     Dates: start: 20240318, end: 20240322
  8. SODIUM PICOSULFATE [Concomitant]
     Active Substance: SODIUM PICOSULFATE
     Indication: Constipation
     Dosage: 20 GTT DROPS (PRN, MAXIMUM 20 GTT PER DAY)
     Route: 048
     Dates: start: 20240318, end: 20240322
  9. Makatussin [Concomitant]
     Indication: Cough
     Dosage: 15 DOSAGE FORM ( PRN 15 GTT EVERY 4 HOURS, MAXIMUM 40 GTT PER DAY)
     Route: 048
     Dates: start: 20240318, end: 20240322
  10. Redormin [Concomitant]
     Indication: Sleep disorder
     Dosage: 1 DOSAGE FORM (PRN, MAXIMUM 1 PER DAY)
     Route: 048
     Dates: start: 20240318, end: 20240322
  11. CALCIUM CHLORIDE\MAGNESIUM CHLORIDE\MALIC ACID\POTASSIUM CHLORIDE\SODI [Concomitant]
     Active Substance: CALCIUM CHLORIDE\MAGNESIUM CHLORIDE\MALIC ACID\POTASSIUM CHLORIDE\SODIUM ACETATE\SODIUM CHLORIDE
     Dosage: 1000 MILLILITER, BID ( 1 - 0 -1)
     Route: 042
     Dates: start: 20240318, end: 20240322
  12. SYMBICORT [Concomitant]
     Active Substance: BUDESONIDE\FORMOTEROL FUMARATE DIHYDRATE
     Dosage: 2 DOSAGE FORM, BID (200/6 2-0-2)
     Route: 055
     Dates: start: 20240318, end: 20240322

REACTIONS (6)
  - Neurological symptom [Recovered/Resolved]
  - Toxicity to various agents [Recovered/Resolved]
  - Anaemia [Not Recovered/Not Resolved]
  - Agranulocytosis [Recovered/Resolved]
  - Transaminases increased [Recovering/Resolving]
  - Thrombocytopenia [Recovered/Resolved]

NARRATIVE: CASE EVENT DATE: 20240322
